FAERS Safety Report 4519789-6 (Version None)
Quarter: 2004Q4

REPORT INFORMATION
  Report Type: 
  Country: None (occurrence: None)
  Receive Date: 20041202
  Receipt Date: 20041202
  Transmission Date: 20050328
  Serious: Yes (Hospitalization)
  Sender: FDA-Public Use
  Company Number: None

PATIENT
  Sex: Male

DRUGS (1)
  1. GEMZAR [Suspect]
     Indication: PANCREATIC CARCINOMA STAGE IV
     Dosage: 2380 MGS 1 WEEKLY X3 WEEKS
     Dates: start: 20040722

REACTIONS (9)
  - BACK PAIN [None]
  - CATHETER SITE DISCHARGE [None]
  - COMPUTERISED TOMOGRAM ABNORMAL [None]
  - CONSTIPATION [None]
  - DEHYDRATION [None]
  - LABORATORY TEST ABNORMAL [None]
  - MARKEDLY REDUCED DIETARY INTAKE [None]
  - PLEURAL EFFUSION [None]
  - WEIGHT DECREASED [None]
